FAERS Safety Report 6052904-4 (Version None)
Quarter: 2009Q1

REPORT INFORMATION
  Report Type: 
  Country: None (occurrence: None)
  Receive Date: 20090127
  Receipt Date: 20080701
  Transmission Date: 20090719
  Serious: No
  Sender: FDA-Public Use
  Company Number: US-ABBOTT-08P-163-0459970-00

PATIENT
  Sex: Male

DRUGS (3)
  1. LUPRON DEPOT [Suspect]
     Indication: PROSTATE CANCER
     Route: 030
     Dates: start: 20070918, end: 20070918
  2. DIABETIC MEDICATION [Concomitant]
     Indication: DIABETES MELLITUS
     Route: 048
  3. CALCIUM CHANNEL BLOCKERS [Concomitant]
     Indication: HYPERTENSION
     Route: 048

REACTIONS (9)
  - ABASIA [None]
  - BLOOD TESTOSTERONE DECREASED [None]
  - BONE PAIN [None]
  - BURNING SENSATION [None]
  - ERECTILE DYSFUNCTION [None]
  - HEADACHE [None]
  - HYPERCALCAEMIA [None]
  - PAIN [None]
  - TINNITUS [None]
